FAERS Safety Report 23817114 (Version 1)
Quarter: 2024Q2

REPORT INFORMATION
  Report Type: Spontaneous
  Country: JP (occurrence: JP)
  Receive Date: 20240504
  Receipt Date: 20240504
  Transmission Date: 20240715
  Serious: Yes (Life-Threatening, Hospitalization)
  Sender: FDA-Public Use
  Company Number: JP-STERISCIENCE B.V.-2024-ST-000521

PATIENT
  Age: 72 Year
  Sex: Male

DRUGS (15)
  1. FOSAPREPITANT [Interacting]
     Active Substance: FOSAPREPITANT
     Indication: Antiemetic supportive care
     Dosage: 150 MILLIGRAM
     Route: 042
  2. OXYCODONE [Interacting]
     Active Substance: OXYCODONE\OXYCODONE HYDROCHLORIDE
     Indication: Proctalgia
     Dosage: ORAL OXYCODONE RAPID-RELEASE FORMULATION
     Route: 048
  3. OXYCODONE [Interacting]
     Active Substance: OXYCODONE\OXYCODONE HYDROCHLORIDE
     Dosage: ORAL OXYCODONE RAPID-RELEASE FORMULATION
     Route: 048
  4. OXYCODONE [Interacting]
     Active Substance: OXYCODONE\OXYCODONE HYDROCHLORIDE
     Dosage: CONTINUOUS INFUSION
     Route: 065
  5. OXYCODONE [Interacting]
     Active Substance: OXYCODONE\OXYCODONE HYDROCHLORIDE
     Dosage: BOLUS OF 1H QUANTITY AS A RESCUE DOSE
     Route: 065
  6. OXYCODONE [Interacting]
     Active Substance: OXYCODONE\OXYCODONE HYDROCHLORIDE
     Dosage: 108 MILLIGRAM, QD
     Route: 065
  7. OXYCODONE [Interacting]
     Active Substance: OXYCODONE\OXYCODONE HYDROCHLORIDE
     Dosage: DOSE REDUCED
     Route: 065
  8. DEXAMETHASONE [Interacting]
     Active Substance: DEXAMETHASONE
     Indication: Antiemetic supportive care
     Dosage: 9.9 MILLIGRAM
     Route: 042
  9. DEXAMETHASONE [Interacting]
     Active Substance: DEXAMETHASONE
     Dosage: UNK
     Route: 042
  10. PALONOSETRON [Interacting]
     Active Substance: PALONOSETRON
     Indication: Antiemetic supportive care
     Dosage: 0.75 MILLIGRAM
     Route: 042
  11. DEGARELIX [Concomitant]
     Active Substance: DEGARELIX
     Indication: Prostate cancer metastatic
     Dosage: UNK
     Route: 065
  12. ABIRATERONE [Concomitant]
     Active Substance: ABIRATERONE
     Indication: Prostate cancer metastatic
     Dosage: UNK
     Route: 065
  13. FENTANYL [Concomitant]
     Active Substance: FENTANYL\FENTANYL CITRATE
     Indication: Proctalgia
     Dosage: INFUSION
     Route: 065
  14. FENTANYL [Concomitant]
     Active Substance: FENTANYL\FENTANYL CITRATE
     Dosage: 12.5 MICROGRAM, QH
     Route: 062
  15. TRAMADOL [Concomitant]
     Active Substance: TRAMADOL\TRAMADOL HYDROCHLORIDE
     Indication: Proctalgia
     Dosage: UNK
     Route: 065

REACTIONS (3)
  - Respiratory depression [Recovered/Resolved]
  - Sedation complication [Recovered/Resolved]
  - Drug interaction [Unknown]
